FAERS Safety Report 5176625-5 (Version None)
Quarter: 2006Q4

REPORT INFORMATION
  Report Type: 
  Country: None (occurrence: None)
  Receive Date: 20061207
  Receipt Date: 20061129
  Transmission Date: 20070319
  Serious: Yes (Hospitalization, Other)
  Sender: FDA-Public Use
  Company Number: 2006135847

PATIENT
  Age: 89 Year
  Sex: Male
  Weight: 55 kg

DRUGS (5)
  1. TOLTERODINE TARTRATE [Suspect]
     Indication: HYPERTONIC BLADDER
     Dosage: 2 MG (2 MG, 1 IN 1 D), ORAL
     Route: 048
     Dates: start: 20061018, end: 20061031
  2. FLIVAS (NAFTOPIDIL) [Concomitant]
  3. POSTERISAN FORTE (ESCHERICHIA COLI, LYOPHILIZED, HYDROCORTISONE, LANOL [Concomitant]
  4. GASMOTIN (MOSAPRIDE CITRATE) [Concomitant]
  5. MAGNESIUM OXIDE (MAGNESIUM OXIDE) [Concomitant]

REACTIONS (1)
  - ILEUS [None]
